FAERS Safety Report 14771796 (Version 2)
Quarter: 2019Q1

REPORT INFORMATION
  Report Type: Spontaneous
  Country: US (occurrence: US)
  Receive Date: 20180417
  Receipt Date: 20190325
  Transmission Date: 20190417
  Serious: No
  Sender: FDA-Public Use
  Company Number: US-ALLERGAN-1759796US

PATIENT
  Sex: Female

DRUGS (3)
  1. LATISSE [Suspect]
     Active Substance: BIMATOPROST
     Dosage: UNK
     Route: 061
  2. LATISSE [Suspect]
     Active Substance: BIMATOPROST
     Dosage: UNK
     Route: 061
  3. LATISSE [Suspect]
     Active Substance: BIMATOPROST
     Indication: GROWTH OF EYELASHES
     Dosage: 2 GTT, QHS
     Route: 061
     Dates: start: 201708, end: 201709

REACTIONS (5)
  - Multiple use of single-use product [Unknown]
  - Drug ineffective [Unknown]
  - Eye irritation [Recovered/Resolved]
  - Expired product administered [Unknown]
  - Dry eye [Recovered/Resolved]
